FAERS Safety Report 7378250-4 (Version None)
Quarter: 2011Q1

REPORT INFORMATION
  Report Type: 
  Country: None (occurrence: None)
  Receive Date: 20110328
  Receipt Date: 20110321
  Transmission Date: 20110831
  Serious: Yes (Hospitalization)
  Sender: FDA-Public Use
  Company Number: B0707496A

PATIENT
  Sex: Female

DRUGS (3)
  1. LAMICTAL [Suspect]
     Indication: BIPOLAR DISORDER
     Route: 048
     Dates: start: 20110111, end: 20110204
  2. THERALITE [Concomitant]
     Indication: BIPOLAR DISORDER
     Route: 065
     Dates: start: 20101001
  3. DEPAMIDE [Concomitant]
     Indication: BIPOLAR DISORDER
     Route: 065
     Dates: start: 20101001

REACTIONS (11)
  - HEPATOCELLULAR INJURY [None]
  - URTICARIA [None]
  - ERYTHEMA [None]
  - CONDITION AGGRAVATED [None]
  - PURPURA [None]
  - OEDEMA PERIPHERAL [None]
  - EOSINOPHILIA [None]
  - SKIN LESION [None]
  - PYREXIA [None]
  - LYMPHADENOPATHY [None]
  - DRUG RASH WITH EOSINOPHILIA AND SYSTEMIC SYMPTOMS [None]
